FAERS Safety Report 5824933-4 (Version None)
Quarter: 2008Q3

REPORT INFORMATION
  Report Type: 
  Country: None (occurrence: None)
  Receive Date: 20080728
  Receipt Date: 20080716
  Transmission Date: 20090109
  Serious: Yes (Other)
  Sender: FDA-Public Use
  Company Number: US-PFIZER INC-2008045761

PATIENT
  Sex: Male
  Weight: 77 kg

DRUGS (2)
  1. SUTENT [Suspect]
     Indication: HEPATIC NEOPLASM MALIGNANT
     Route: 048
     Dates: start: 20080513, end: 20080523
  2. LISINOPRIL [Concomitant]
     Indication: HYPERTENSION
     Route: 048

REACTIONS (8)
  - BODY TEMPERATURE DECREASED [None]
  - DIZZINESS [None]
  - FATIGUE [None]
  - HYPERTENSION [None]
  - JAUNDICE [None]
  - LIVER FUNCTION TEST ABNORMAL [None]
  - PYREXIA [None]
  - WEIGHT DECREASED [None]
